FAERS Safety Report 6120350-0 (Version None)
Quarter: 2009Q1

REPORT INFORMATION
  Report Type: 
  Country: None (occurrence: None)
  Receive Date: 20090312
  Receipt Date: 20090312
  Transmission Date: 20090719
  Serious: Yes (Other)
  Sender: FDA-Public Use
  Company Number: None

PATIENT
  Sex: Female
  Weight: 68.0396 kg

DRUGS (1)
  1. CARVEDILOL [Suspect]
     Indication: CARDIAC DISORDER
     Dosage: 1 TABLET 2 X DAILY
     Dates: start: 20090220, end: 20090223

REACTIONS (2)
  - COUGH [None]
  - DIARRHOEA [None]
